FAERS Safety Report 25879090 (Version 1)
Quarter: 2025Q4

REPORT INFORMATION
  Report Type: Spontaneous
  Country: BR (occurrence: BR)
  Receive Date: 20251003
  Receipt Date: 20251003
  Transmission Date: 20260118
  Serious: Yes (Other)
  Sender: NOVARTIS
  Company Number: BR-002147023-NVSC2025BR150482

PATIENT

DRUGS (1)
  1. NILOTINIB [Suspect]
     Active Substance: NILOTINIB
     Indication: Product used for unknown indication
     Dosage: UNK
     Route: 065

REACTIONS (7)
  - Haematotoxicity [Unknown]
  - Leukopenia [Unknown]
  - Renal impairment [Unknown]
  - Diabetic metabolic decompensation [Unknown]
  - Hyperglycaemia [Unknown]
  - Rash [Unknown]
  - Anaemia [Unknown]
